FAERS Safety Report 16733415 (Version 1)
Quarter: 2019Q3

REPORT INFORMATION
  Report Type: Spontaneous
  Country: GB (occurrence: GB)
  Receive Date: 20190823
  Receipt Date: 20190823
  Transmission Date: 20191005
  Serious: Yes (Disabling)
  Sender: FDA-Public Use
  Company Number: GB-TEVA-2019-GB-1095561

PATIENT
  Age: 79 Year
  Sex: Female
  Weight: 70 kg

DRUGS (6)
  1. DEXAMETHASONE. [Suspect]
     Active Substance: DEXAMETHASONE
     Dosage: TAPER OFF OVER THE NEXT 3 WEEKS AS DIRECTED BY HOSPITAL
     Dates: start: 20190513
  2. HYDROXOCOBALAMIN [Concomitant]
     Active Substance: HYDROXOCOBALAMIN
     Dosage: USE AS DIRECTED
     Dates: start: 20170505
  3. LANSOPRAZOLE. [Concomitant]
     Active Substance: LANSOPRAZOLE
     Dosage: EACH MORNING AS REQUIRED, 1 DOSAGE FORM
     Dates: start: 20170606
  4. ACULAR [Concomitant]
     Active Substance: KETOROLAC TROMETHAMINE
     Dosage: OR AS DIRECTED BY HOSPITAL
     Dates: start: 20190424
  5. MAXIDEX [Concomitant]
     Active Substance: DEXAMETHASONE
     Indication: CATARACT OPERATION
     Dosage: ONE DROP EVERY 4 HRS TO BOTH EYES
     Dates: start: 20190703, end: 20190717
  6. COSMOCOL [Concomitant]
     Dosage: 1-2 DAILY
     Dates: start: 20190218

REACTIONS (3)
  - Balance disorder [Recovered/Resolved]
  - Muscular weakness [Recovered/Resolved]
  - Nervousness [Recovered/Resolved]

NARRATIVE: CASE EVENT DATE: 20190722
